FAERS Safety Report 7161842-5 (Version None)
Quarter: 2010Q4

REPORT INFORMATION
  Report Type: 
  Country: None (occurrence: None)
  Receive Date: 20101215
  Receipt Date: 20100706
  Transmission Date: 20110411
  Serious: Yes (Other)
  Sender: FDA-Public Use
  Company Number: BE-PFIZER INC-2010084288

PATIENT
  Age: 78 Year
  Sex: Male

DRUGS (5)
  1. LYRICA [Suspect]
     Indication: INFLAMMATION
     Dosage: 75 MG, SINGLE
     Route: 048
     Dates: start: 20100501, end: 20100501
  2. ESCITALOPRAM [Concomitant]
     Dosage: 10 MG, UNK
  3. RIVOTRIL [Concomitant]
     Dosage: 2 MG, UNK
  4. SEROQUEL [Concomitant]
  5. LORAZEPAM [Concomitant]
     Dosage: 2 MG, UNK

REACTIONS (2)
  - DRUG DEPENDENCE [None]
  - EUPHORIC MOOD [None]
